FAERS Safety Report 5281685-7 (Version None)
Quarter: 2007Q1

REPORT INFORMATION
  Report Type: 
  Country: None (occurrence: None)
  Receive Date: 20070330
  Receipt Date: 20070322
  Transmission Date: 20070707
  Serious: Yes (Other)
  Sender: FDA-Public Use
  Company Number: GB-JNJFOC-20070306016

PATIENT
  Age: 58 Year
  Sex: Male

DRUGS (1)
  1. REOPRO [Suspect]
     Indication: STENT PLACEMENT

REACTIONS (1)
  - ARRHYTHMIA [None]
